FAERS Safety Report 22616195 (Version 2)
Quarter: 2023Q4

REPORT INFORMATION
  Report Type: Spontaneous
  Country: JP (occurrence: JP)
  Receive Date: 20230619
  Receipt Date: 20231006
  Transmission Date: 20240110
  Serious: Yes (Hospitalization)
  Sender: FDA-Public Use
  Company Number: JP-BAYER-2023A083116

PATIENT
  Age: 54 Year
  Sex: Female

DRUGS (2)
  1. IOPROMIDE [Suspect]
     Active Substance: IOPROMIDE
     Indication: Uterine cancer
     Dosage: UNK, ONCE
     Dates: start: 20230609, end: 20230609
  2. IOPROMIDE [Suspect]
     Active Substance: IOPROMIDE
     Indication: Scan with contrast

REACTIONS (5)
  - Pain of skin [Recovered/Resolved]
  - Flushing [Recovered/Resolved]
  - Ocular hyperaemia [Recovered/Resolved]
  - Oropharyngeal discomfort [Recovered/Resolved]
  - Blood pressure decreased [Recovered/Resolved]

NARRATIVE: CASE EVENT DATE: 20230609
